APPROVED DRUG PRODUCT: HALOPERIDOL
Active Ingredient: HALOPERIDOL
Strength: 5MG
Dosage Form/Route: TABLET;ORAL
Application: A077580 | Product #003 | TE Code: AB
Applicant: ZYDUS PHARMACEUTICALS USA INC
Approved: Nov 29, 2007 | RLD: No | RS: No | Type: RX